FAERS Safety Report 20810924 (Version 1)
Quarter: 2022Q2

REPORT INFORMATION
  Report Type: Report from Study
  Country: US (occurrence: US)
  Receive Date: 20220510
  Receipt Date: 20220510
  Transmission Date: 20220721
  Serious: Yes (Other)
  Sender: FDA-Public Use
  Company Number: US-JAZZ-2022-US-015449

PATIENT
  Sex: Female

DRUGS (1)
  1. XYWAV [Suspect]
     Active Substance: CALCIUM OXYBATE\MAGNESIUM OXYBATE\POTASSIUM OXYBATE\SODIUM OXYBATE
     Indication: Narcolepsy
     Dosage: UNK
     Route: 048
     Dates: start: 20220407

REACTIONS (7)
  - Loss of consciousness [Unknown]
  - Illness [Unknown]
  - Hunger [Unknown]
  - Emotional disorder [Unknown]
  - Retching [Unknown]
  - Enuresis [Unknown]
  - Weight decreased [Unknown]
